FAERS Safety Report 15352617 (Version 1)
Quarter: 2018Q3

REPORT INFORMATION
  Report Type: Spontaneous
  Country: US (occurrence: US)
  Receive Date: 20180905
  Receipt Date: 20180905
  Transmission Date: 20181010
  Serious: Yes (Life-Threatening)
  Sender: FDA-Public Use
  Company Number: US-VIFOR (INTERNATIONAL) INC.-VIT-2018-08619

PATIENT
  Sex: Male

DRUGS (11)
  1. CALCIUM ACETATE. [Concomitant]
     Active Substance: CALCIUM ACETATE
  2. COREG [Concomitant]
     Active Substance: CARVEDILOL
  3. KAYEXALATE [Concomitant]
     Active Substance: SODIUM POLYSTYRENE SULFONATE
  4. VITAMIN D3 [Concomitant]
     Active Substance: CHOLECALCIFEROL
  5. GABAPENTIN. [Concomitant]
     Active Substance: GABAPENTIN
  6. VELTASSA [Suspect]
     Active Substance: PATIROMER
     Indication: HYPERKALAEMIA
     Route: 048
     Dates: start: 20180405, end: 2018
  7. RENAL?VITE [Concomitant]
  8. PHOSLO [Concomitant]
     Active Substance: CALCIUM ACETATE
  9. PEPCID [Concomitant]
     Active Substance: FAMOTIDINE
  10. CARVEDILOL. [Concomitant]
     Active Substance: CARVEDILOL
  11. LEXAPRO [Concomitant]
     Active Substance: ESCITALOPRAM OXALATE

REACTIONS (2)
  - Apparent death [Unknown]
  - Off label use [Unknown]

NARRATIVE: CASE EVENT DATE: 2018
